FAERS Safety Report 20043050 (Version 1)
Quarter: 2021Q4

REPORT INFORMATION
  Report Type: Spontaneous
  Country: DK (occurrence: DK)
  Receive Date: 20211108
  Receipt Date: 20211108
  Transmission Date: 20220304
  Serious: Yes (Death)
  Sender: FDA-Public Use
  Company Number: None

PATIENT
  Age: 58 Year
  Sex: Male

DRUGS (8)
  1. SUMATRIPTAN [Suspect]
     Active Substance: SUMATRIPTAN
     Indication: Migraine
     Dosage: STRENGTH: 100 MG
     Route: 048
     Dates: start: 20200117
  2. COMIRNATY [Suspect]
     Active Substance: TOZINAMERAN
     Indication: COVID-19 immunisation
     Dosage: 1 DOSAGE FORM
     Dates: start: 20210520, end: 20210625
  3. TRAMADOL [Concomitant]
     Active Substance: TRAMADOL
     Indication: Pain
     Dosage: DOSAGE: 1-2 TABLETS TWICE A DAY
     Route: 048
     Dates: start: 20151125
  4. PREGABALIN [Concomitant]
     Active Substance: PREGABALIN
     Indication: Neuralgia
     Dosage: STRENGTH: 25 MG
     Route: 048
     Dates: start: 20210218
  5. MORPHINE SULFATE [Concomitant]
     Active Substance: MORPHINE SULFATE
     Indication: Pain
     Dosage: DOSAGE: 1-2 TABLETS TWICE A DAY.  STRENGTH: 10 MG
     Route: 048
     Dates: start: 20170504
  6. CIPRAMIL                           /00582602/ [Concomitant]
     Indication: Depression
     Dosage: 10 MILLIGRAM, QD
     Route: 048
     Dates: start: 20190902
  7. IMOVANE [Concomitant]
     Active Substance: ZOPICLONE
     Indication: Insomnia
     Dosage: STRENGTH: 7.5 MG
     Route: 048
     Dates: start: 20200124
  8. BETAMETHASONE VALERATE\FUSIDIC ACID [Concomitant]
     Active Substance: BETAMETHASONE VALERATE\FUSIDIC ACID
     Indication: Eczema infected
     Dosage: DOSAEG: 1 APPLICATION 2-3 TIMES DAILY.  STRENGTH: 1+20 MG/G
     Route: 003
     Dates: start: 20160307

REACTIONS (2)
  - Sudden cardiac death [Fatal]
  - Chest pain [Unknown]

NARRATIVE: CASE EVENT DATE: 20210626
